FAERS Safety Report 9500542 (Version 1)
Quarter: 2013Q3

REPORT INFORMATION
  Report Type: Spontaneous
  Country: US (occurrence: None)
  Receive Date: 20130904
  Receipt Date: 20130904
  Transmission Date: 20140515
  Serious: No
  Sender: FDA-Public Use
  Company Number: None

PATIENT
  Age: 75 Year
  Sex: Male
  Weight: 74.84 kg

DRUGS (5)
  1. SULFAMETHOXAZOLE + TRIMETHOPRIM [Suspect]
     Indication: URINARY TRACT INFECTION
     Route: 048
     Dates: start: 20130730, end: 20130730
  2. ZOPIDERM [Concomitant]
  3. FLOMAX [Concomitant]
  4. MUSHROOMS [Concomitant]
  5. MULTIVITAMINS [Concomitant]

REACTIONS (2)
  - Rash macular [None]
  - Rash macular [None]
